FAERS Safety Report 7141013-9 (Version None)
Quarter: 2010Q4

REPORT INFORMATION
  Report Type: 
  Country: None (occurrence: None)
  Receive Date: 20101122
  Receipt Date: 20101105
  Transmission Date: 20110411
  Serious: No
  Sender: FDA-Public Use
  Company Number: PHHY2010JP1695

PATIENT
  Age: 57 Year
  Sex: Male

DRUGS (12)
  1. TEGRETOL [Suspect]
     Dosage: 100 MG, BID ORAL
     Route: 048
  2. TERNELIN (TIZANIDINE HYDROCHLORIDE) UNKNOWN, 2 MG [Suspect]
     Dosage: 1 DF, BID ORAL
     Route: 048
     Dates: start: 20100910
  3. LOXONIN (LOXOPROFEN SODIUM) [Suspect]
     Dosage: ORAL
     Route: 048
  4. GASMOTIN (MOSAPRIDE CITRATE) [Suspect]
     Dosage: ORAL
     Route: 048
  5. BIFIDOBACTERIUM BIFIDUM (BIFIDOBACTERIUM BIFIDUM) [Suspect]
     Dosage: ORAL
     Route: 048
  6. FAMOTIDINE [Suspect]
     Dosage: ORAL
     Route: 048
  7. MOBIC [Suspect]
     Dosage: ORAL
     Route: 048
  8. LANDEL (EFONIDIPINE HYDROCHLORIDE) [Concomitant]
     Dosage: ORAL
     Route: 048
  9. FLUITRAN (TRICHLORMETHIAZIDE) [Suspect]
     Dosage: ORAL
     Route: 048
  10. OPALMON (LIMAPROST) [Suspect]
     Dosage: ORAL
     Route: 048
  11. METHYCOBAL (MECOBALAMIN) [Suspect]
     Dosage: ORAL
     Route: 048
  12. AVAPRO [Suspect]
     Dosage: ORAL
     Route: 048

REACTIONS (1)
  - MENIERE'S DISEASE [None]
